FAERS Safety Report 9338619 (Version 1)
Quarter: 2013Q2

REPORT INFORMATION
  Report Type: Spontaneous
  Country: US (occurrence: None)
  Receive Date: 20130605
  Receipt Date: 20130605
  Transmission Date: 20140414
  Serious: Yes (Hospitalization)
  Sender: FDA-Public Use
  Company Number: None

PATIENT
  Age: 66 Year
  Sex: Male
  Weight: 103 kg

DRUGS (1)
  1. YERVOY [Suspect]
     Indication: METASTATIC MALIGNANT MELANOMA
     Dosage: 3 MG/KG EVERY 21 DAYS
     Route: 042
     Dates: start: 20120812, end: 20121022

REACTIONS (4)
  - Orthostatic hypotension [None]
  - Presyncope [None]
  - Fatigue [None]
  - Autoimmune disorder [None]
